FAERS Safety Report 9758188 (Version 1)
Quarter: 2013Q4

REPORT INFORMATION
  Report Type: Spontaneous
  Country: US (occurrence: None)
  Receive Date: 20131213
  Receipt Date: 20131213
  Transmission Date: 20140711
  Serious: Yes (Life-Threatening, Hospitalization)
  Sender: FDA-Public Use
  Company Number: None

PATIENT
  Age: 27 Year
  Sex: Female
  Weight: 65.77 kg

DRUGS (1)
  1. NUVARING [Suspect]
     Indication: CONTRACEPTION
     Dosage: 1 RING  1 FOR 3WKS/1WK OFF  VAGINAL
     Route: 067
     Dates: start: 20120301, end: 20121210

REACTIONS (2)
  - Pulmonary embolism [None]
  - Loss of consciousness [None]
